FAERS Safety Report 9843659 (Version 1)
Quarter: 2013Q4

REPORT INFORMATION
  Report Type: Spontaneous
  Country: US (occurrence: None)
  Receive Date: 20131223
  Receipt Date: 20131223
  Transmission Date: 20140711
  Serious: No
  Sender: FDA-Public Use
  Company Number: 220057LEO

PATIENT
  Sex: Female

DRUGS (1)
  1. PICATO 0.015 %, GEL [Suspect]
     Indication: ACTINIC KERATOSIS
     Route: 061
     Dates: start: 20130101, end: 20130103

REACTIONS (6)
  - Application site dryness [None]
  - Eye swelling [None]
  - Skin exfoliation [None]
  - Application site pruritus [None]
  - Drug administration error [None]
  - Application site exfoliation [None]
